FAERS Safety Report 24698364 (Version 1)
Quarter: 2024Q4

REPORT INFORMATION
  Report Type: Report from Study
  Country: FR (occurrence: FR)
  Receive Date: 20241204
  Receipt Date: 20241204
  Transmission Date: 20250114
  Serious: Yes (Hospitalization)
  Sender: BIOGEN
  Company Number: FR-BIOGEN-2024BI01292313

PATIENT
  Age: 20 Year
  Sex: Female
  Weight: 55.1 kg

DRUGS (3)
  1. OMAVELOXOLONE [Suspect]
     Active Substance: OMAVELOXOLONE
     Indication: Friedreich^s ataxia
     Dosage: 3 CAPSULES OF 50MG FOR 3 MONTHS
     Route: 050
     Dates: start: 20240227
  2. IDEBENONE [Concomitant]
     Active Substance: IDEBENONE
     Indication: Friedreich^s ataxia
     Dosage: 45MG TABLET
     Route: 050
     Dates: start: 20170116
  3. BACLOFEN [Concomitant]
     Active Substance: BACLOFEN
     Indication: Friedreich^s ataxia
     Route: 050
     Dates: start: 20191014

REACTIONS (1)
  - Biliary colic [Recovered/Resolved]

NARRATIVE: CASE EVENT DATE: 20241024
